FAERS Safety Report 7344804-4 (Version None)
Quarter: 2011Q1

REPORT INFORMATION
  Report Type: 
  Country: None (occurrence: None)
  Receive Date: 20110307
  Receipt Date: 20110307
  Transmission Date: 20110831
  Serious: Yes (Other)
  Sender: FDA-Public Use
  Company Number: None

PATIENT
  Age: 2 Year
  Sex: Male
  Weight: 12.2471 kg

DRUGS (1)
  1. TAMIFLU [Suspect]
     Indication: INFLUENZA
     Dosage: .2 ML 2 X DAILY
     Dates: start: 20110222, end: 20110227

REACTIONS (4)
  - ANGER [None]
  - AGGRESSION [None]
  - HEAD INJURY [None]
  - DEPRESSED MOOD [None]
